FAERS Safety Report 17003641 (Version 3)
Quarter: 2020Q1

REPORT INFORMATION
  Report Type: Spontaneous
  Country: DE (occurrence: DE)
  Receive Date: 20191107
  Receipt Date: 20200107
  Transmission Date: 20200409
  Serious: Yes (Other)
  Sender: FDA-Public Use
  Company Number: DE-BIOGEN-2019BI00802643

PATIENT
  Age: 17 Year
  Sex: Female
  Weight: 85 kg

DRUGS (1)
  1. TYSABRI [Suspect]
     Active Substance: NATALIZUMAB
     Indication: MULTIPLE SCLEROSIS
     Route: 042
     Dates: start: 201204

REACTIONS (3)
  - Deep vein thrombosis [Recovered/Resolved]
  - Off label use [Unknown]
  - Cerebral venous sinus thrombosis [Recovered/Resolved]

NARRATIVE: CASE EVENT DATE: 201204
